FAERS Safety Report 16902469 (Version 1)
Quarter: 2019Q4

REPORT INFORMATION
  Report Type: Spontaneous
  Country: IT (occurrence: IT)
  Receive Date: 20191010
  Receipt Date: 20191010
  Transmission Date: 20200122
  Serious: Yes (Other)
  Sender: FDA-Public Use
  Company Number: IT-ROCHE-2431860

PATIENT
  Age: 54 Year
  Sex: Female

DRUGS (3)
  1. CARDICOR [Concomitant]
     Active Substance: BISOPROLOL
  2. RIVOTRIL [Suspect]
     Active Substance: CLONAZEPAM
     Indication: PRODUCT USED FOR UNKNOWN INDICATION
     Route: 065
  3. EUTIROX [Concomitant]
     Active Substance: LEVOTHYROXINE SODIUM

REACTIONS (2)
  - Erythema [Unknown]
  - Face oedema [Unknown]

NARRATIVE: CASE EVENT DATE: 20190617
